FAERS Safety Report 6550786-5 (Version None)
Quarter: 2010Q1

REPORT INFORMATION
  Report Type: 
  Country: None (occurrence: None)
  Receive Date: 20100125
  Receipt Date: 20100119
  Transmission Date: 20100710
  Serious: Yes (Death)
  Sender: FDA-Public Use
  Company Number: PHHY2010AT02841

PATIENT
  Sex: Female
  Weight: 42 kg

DRUGS (4)
  1. CGS 20267 T30748+ [Suspect]
     Dosage: UNK
     Dates: start: 20090701, end: 20091018
  2. TEMESTA [Concomitant]
     Dosage: 1 MG, UNK
  3. DILATREND [Concomitant]
     Dosage: 6.25 MG, UNK
  4. PANTOPRAZOLE [Concomitant]
     Dosage: 20 MG, UNK

REACTIONS (1)
  - DEATH [None]
